FAERS Safety Report 15965417 (Version 3)
Quarter: 2019Q2

REPORT INFORMATION
  Report Type: Report from Study
  Country: IT (occurrence: IT)
  Receive Date: 20190215
  Receipt Date: 20190412
  Transmission Date: 20190711
  Serious: Yes (Hospitalization)
  Sender: FDA-Public Use
  Company Number: IT-ROCHE-2264828

PATIENT
  Age: 63 Year
  Sex: Female
  Weight: 62 kg

DRUGS (18)
  1. INDERAL [Concomitant]
     Active Substance: PROPRANOLOL HYDROCHLORIDE
     Indication: CARDIAC ARREST
     Route: 048
     Dates: start: 20190124, end: 20190315
  2. TAVANIC [Concomitant]
     Active Substance: LEVOFLOXACIN
     Indication: PNEUMONITIS
     Route: 048
     Dates: start: 20190205, end: 20190212
  3. LASIX [Concomitant]
     Active Substance: FUROSEMIDE
     Indication: PULMONARY OEDEMA
     Route: 042
     Dates: start: 20190224, end: 20190303
  4. TAPAZOLE [Concomitant]
     Active Substance: METHIMAZOLE
     Route: 048
     Dates: start: 20190117, end: 20190206
  5. TAPAZOLE [Concomitant]
     Active Substance: METHIMAZOLE
     Route: 048
     Dates: start: 20190207, end: 20190326
  6. SOLU-MEDROL [Concomitant]
     Active Substance: METHYLPREDNISOLONE SODIUM SUCCINATE
     Indication: PNEUMONITIS
  7. AMIKACINA [Concomitant]
     Active Substance: AMIKACIN SULFATE
     Indication: COUGH
     Route: 042
     Dates: start: 20190226, end: 20190311
  8. TAPAZOLE [Concomitant]
     Active Substance: METHIMAZOLE
     Indication: HYPERTHYROIDISM
     Route: 048
     Dates: start: 20190110, end: 20190116
  9. OXYGEN. [Concomitant]
     Active Substance: OXYGEN
     Indication: DYSPNOEA
     Dosage: 4 INHALATION
     Route: 055
     Dates: start: 20190224, end: 20190311
  10. LASIX [Concomitant]
     Active Substance: FUROSEMIDE
     Route: 048
     Dates: start: 20190304
  11. SOLU-MEDROL [Concomitant]
     Active Substance: METHYLPREDNISOLONE SODIUM SUCCINATE
     Indication: COUGH
     Route: 065
     Dates: start: 20190226, end: 20190311
  12. TAZOCIN [Concomitant]
     Active Substance: PIPERACILLIN SODIUM\TAZOBACTAM SODIUM
     Indication: COUGH
     Route: 042
     Dates: start: 20190226, end: 20190311
  13. ATEZOLIZUMAB. [Suspect]
     Active Substance: ATEZOLIZUMAB
     Indication: NON-SMALL CELL LUNG CANCER
     Dosage: ON 27/DEC/2018, MOST RECENT DOSE OF ATEZOLIZUMAB PRIOR TO SAE ONSET.
     Route: 042
     Dates: start: 20180814
  14. TAZOCIN [Concomitant]
     Active Substance: PIPERACILLIN SODIUM\TAZOBACTAM SODIUM
     Indication: PNEUMONITIS
  15. AMIKACINA [Concomitant]
     Active Substance: AMIKACIN SULFATE
     Indication: PNEUMONITIS
  16. TACHIPIRINA [Concomitant]
     Active Substance: ACETAMINOPHEN
     Indication: BACK PAIN
     Route: 048
     Dates: start: 20180905
  17. CORTONE ACETATO [Concomitant]
     Active Substance: CORTISONE ACETATE
     Indication: HYPERTHYROIDISM
     Route: 065
     Dates: start: 20190110, end: 20190124
  18. DELTACORTENE [Concomitant]
     Active Substance: PREDNISONE
     Indication: HYPERTHYROIDISM
     Route: 065
     Dates: start: 20190124, end: 20190327

REACTIONS (1)
  - Respiratory failure [Recovered/Resolved]

NARRATIVE: CASE EVENT DATE: 20190209
